FAERS Safety Report 7345460-1 (Version None)
Quarter: 2011Q1

REPORT INFORMATION
  Report Type: 
  Country: None (occurrence: None)
  Receive Date: 20110310
  Receipt Date: 20110303
  Transmission Date: 20110831
  Serious: Yes (Other)
  Sender: FDA-Public Use
  Company Number: US-PFIZER INC-2011047383

PATIENT
  Sex: Male
  Weight: 126.98 kg

DRUGS (9)
  1. CYMBALTA [Concomitant]
     Dosage: UNK
  2. LISINOPRIL [Concomitant]
     Indication: HYPERTENSION
     Dosage: 5 MG, 1X/DAY
  3. SUBUTEX [Concomitant]
     Dosage: UNK
  4. GEMFIBROZIL [Concomitant]
     Indication: BLOOD CHOLESTEROL INCREASED
     Dosage: UNK
  5. RITALIN [Concomitant]
     Dosage: UNK
  6. RELISTOR [Suspect]
     Indication: CONSTIPATION
     Dosage: 18 MG, UNK
     Route: 058
     Dates: start: 20100101, end: 20110201
  7. LISINOPRIL [Concomitant]
     Indication: SLEEP APNOEA SYNDROME
  8. AZELASTINE [Concomitant]
     Dosage: UNK
  9. XANAX [Concomitant]
     Dosage: UNK

REACTIONS (8)
  - VITAMIN D DECREASED [None]
  - INJECTION SITE PRURITUS [None]
  - INJECTION SITE MASS [None]
  - INJECTION SITE INFLAMMATION [None]
  - SKIN INFECTION [None]
  - INJECTION SITE ERYTHEMA [None]
  - INJECTION SITE PAIN [None]
  - ABDOMINAL DISCOMFORT [None]
